FAERS Safety Report 8486564-X (Version None)
Quarter: 2012Q3

REPORT INFORMATION
  Report Type: 
  Country: None (occurrence: None)
  Receive Date: 20120703
  Receipt Date: 20120628
  Transmission Date: 20120928
  Serious: Yes (Disabling, Other)
  Sender: FDA-Public Use
  Company Number: MX-ABBOTT-12P-107-0947507-00

PATIENT
  Sex: Male
  Weight: 99 kg

DRUGS (1)
  1. FENOFIBRATE [Suspect]
     Indication: HYPERTRIGLYCERIDAEMIA
     Route: 048
     Dates: start: 20120301, end: 20120328

REACTIONS (5)
  - HEADACHE [None]
  - MUSCULAR WEAKNESS [None]
  - ARTHRALGIA [None]
  - BONE PAIN [None]
  - MYALGIA [None]
